FAERS Safety Report 13926527 (Version 2)
Quarter: 2017Q4

REPORT INFORMATION
  Report Type: Report from Study
  Country: US (occurrence: US)
  Receive Date: 20170831
  Receipt Date: 20171101
  Transmission Date: 20180320
  Serious: Yes (Hospitalization, Other)
  Sender: FDA-Public Use
  Company Number: US-BAYER-2017-133601

PATIENT
  Age: 86 Year
  Sex: Male

DRUGS (12)
  1. MORPHINE [Concomitant]
     Active Substance: MORPHINE
     Dosage: 50 MG, Q4HR PRN
  2. XOFIGO [Suspect]
     Active Substance: RADIUM RA-223 DICHLORIDE
     Indication: METASTASES TO BONE
  3. XOFIGO [Suspect]
     Active Substance: RADIUM RA-223 DICHLORIDE
     Indication: PROSTATE CANCER STAGE IV
     Dosage: DAILY DOSE 107.58 ?CI, ONCE EVERY 28 DAYS
     Route: 042
     Dates: start: 20170621, end: 20170621
  4. LEUPROLIDE ACETATE. [Concomitant]
     Active Substance: LEUPROLIDE ACETATE
     Dosage: 7.5 MG, DAILY
     Route: 030
  5. SIMVASTATIN. [Concomitant]
     Active Substance: SIMVASTATIN
  6. LUPRON [Concomitant]
     Active Substance: LEUPROLIDE ACETATE
  7. TRAZODONE [Concomitant]
     Active Substance: TRAZODONE HYDROCHLORIDE
     Dosage: 50 MG, DAILY
  8. HEPARIN [Concomitant]
     Active Substance: HEPARIN SODIUM
     Indication: THROMBOSIS PROPHYLAXIS
  9. DULOXETINE. [Concomitant]
     Active Substance: DULOXETINE
     Dosage: 30 MG, DAILY
  10. PREDNISONE. [Concomitant]
     Active Substance: PREDNISONE
     Dosage: 10 MG, BID
  11. MORPHINE [Concomitant]
     Active Substance: MORPHINE
     Dosage: 30 MG, Q12HR
  12. CEFTRIAXONE. [Concomitant]
     Active Substance: CEFTRIAXONE

REACTIONS (10)
  - Back pain [None]
  - Mental status changes [None]
  - Oedema peripheral [None]
  - Acute kidney injury [None]
  - Escherichia urinary tract infection [None]
  - Dehydration [None]
  - Diarrhoea [None]
  - Urinary tract obstruction [None]
  - Bladder catheterisation [None]
  - Pyrexia [None]

NARRATIVE: CASE EVENT DATE: 2017
